FAERS Safety Report 10075877 (Version 4)
Quarter: 2014Q2

REPORT INFORMATION
  Report Type: Spontaneous
  Country: CH (occurrence: CH)
  Receive Date: 20140414
  Receipt Date: 20140430
  Transmission Date: 20141212
  Serious: Yes (Hospitalization)
  Sender: FDA-Public Use
  Company Number: CH-JNJFOC-20110709576

PATIENT
  Age: 41 Year
  Sex: Female
  Weight: 60 kg

DRUGS (4)
  1. XARELTO [Suspect]
     Indication: ANKLE ARTHROPLASTY
     Route: 048
     Dates: start: 20101222, end: 20110118
  2. XARELTO [Suspect]
     Indication: THROMBOSIS PROPHYLAXIS
     Route: 048
     Dates: start: 20101222, end: 20110118
  3. DAFALGAN [Suspect]
     Indication: PRODUCT USED FOR UNKNOWN INDICATION
     Route: 048
     Dates: start: 20101222, end: 20110115
  4. NOVALGIN [Concomitant]
     Route: 048
     Dates: start: 20101222, end: 20110114

REACTIONS (5)
  - Hepatotoxicity [Recovering/Resolving]
  - Chromaturia [Recovering/Resolving]
  - Jaundice [Recovering/Resolving]
  - Hepatotoxicity [Unknown]
  - Decreased appetite [Recovering/Resolving]
